FAERS Safety Report 11178088 (Version 1)
Quarter: 2015Q2

REPORT INFORMATION
  Report Type: Spontaneous
  Country: US (occurrence: US)
  Receive Date: 20150610
  Receipt Date: 20150610
  Transmission Date: 20150821
  Serious: No
  Sender: FDA-Public Use
  Company Number: US-HORIZON-PEN-0083-2015

PATIENT
  Age: 67 Year
  Sex: Male

DRUGS (2)
  1. SYNTHROID [Concomitant]
     Active Substance: LEVOTHYROXINE SODIUM
  2. PENNSAID [Suspect]
     Active Substance: DICLOFENAC SODIUM
     Indication: ARTHRALGIA
     Dates: start: 201503, end: 20150422

REACTIONS (4)
  - Off label use [Unknown]
  - Application site pain [Not Recovered/Not Resolved]
  - Drug ineffective for unapproved indication [Unknown]
  - Application site erythema [Not Recovered/Not Resolved]

NARRATIVE: CASE EVENT DATE: 20150303
